FAERS Safety Report 14342640 (Version 3)
Quarter: 2019Q2

REPORT INFORMATION
  Report Type: Report from Study
  Country: JP (occurrence: JP)
  Receive Date: 20180102
  Receipt Date: 20190417
  Transmission Date: 20190711
  Serious: Yes (Hospitalization, Other)
  Sender: FDA-Public Use
  Company Number: JP-ACTELION-A-CH2017-164849

PATIENT
  Age: 5 Year
  Sex: Female

DRUGS (15)
  1. FLOLAN [Concomitant]
     Active Substance: EPOPROSTENOL SODIUM
  2. OPSUMIT [Suspect]
     Active Substance: MACITENTAN
     Indication: PULMONARY ARTERIAL HYPERTENSION
     Dosage: 2.4 MG, QD
     Route: 048
     Dates: start: 20151228, end: 20180828
  3. URSODEOXYCHOLIC ACID [Concomitant]
     Active Substance: URSODIOL
  4. OXYGEN. [Concomitant]
     Active Substance: OXYGEN
  5. ONON [Concomitant]
     Active Substance: PRANLUKAST
  6. OPSUMIT [Suspect]
     Active Substance: MACITENTAN
     Dosage: 1.5 MG, QD
     Route: 048
     Dates: start: 20150902, end: 20151227
  7. OPSUMIT [Suspect]
     Active Substance: MACITENTAN
     Dosage: 30. MG, QD
     Route: 048
     Dates: start: 20180829
  8. TACROLIMUS. [Suspect]
     Active Substance: TACROLIMUS
     Indication: PRODUCT USED FOR UNKNOWN INDICATION
     Route: 048
  9. FERROMIA [Concomitant]
     Active Substance: SODIUM FERROUS CITRATE
  10. PULMICORT TURBUHALER [Concomitant]
     Active Substance: BUDESONIDE
  11. PROGRAF [Concomitant]
     Active Substance: TACROLIMUS\TACROLIMUS ANHYDROUS
  12. ADCIRCA [Concomitant]
     Active Substance: TADALAFIL
  13. SANDIMMUN [Concomitant]
     Active Substance: CYCLOSPORINE
  14. NITRIC OXIDE. [Concomitant]
     Active Substance: NITRIC OXIDE
  15. NEORAL [Concomitant]
     Active Substance: CYCLOSPORINE

REACTIONS (4)
  - Liver transplant rejection [Recovered/Resolved]
  - Liver transplant [Recovered/Resolved]
  - Hepatic function abnormal [Recovered/Resolved]
  - Hypertensive encephalopathy [Recovered/Resolved]

NARRATIVE: CASE EVENT DATE: 20160115
